FAERS Safety Report 19597926 (Version 3)
Quarter: 2021Q3

REPORT INFORMATION
  Report Type: Report from Study
  Country: RS (occurrence: RS)
  Receive Date: 20210723
  Receipt Date: 20210818
  Transmission Date: 20211014
  Serious: Yes (Other)
  Sender: FDA-Public Use
  Company Number: NVSC2021RS163371

PATIENT
  Age: 43 Year
  Sex: Female
  Weight: 46 kg

DRUGS (9)
  1. MAYZENT [Suspect]
     Active Substance: SIPONIMOD
     Dosage: 2 MG, QD (1X1)
     Route: 048
     Dates: end: 20210714
  2. STELARA [Suspect]
     Active Substance: USTEKINUMAB
     Indication: PSORIASIS
     Dosage: 45 MG, QD (1X1)
     Route: 058
     Dates: start: 20200612, end: 20210708
  3. BACLOFEN. [Concomitant]
     Active Substance: BACLOFEN
     Indication: MUSCLE SPASTICITY
     Dosage: 5M+5MG+10MG
     Route: 065
     Dates: end: 20210720
  4. MAYZENT [Suspect]
     Active Substance: SIPONIMOD
     Indication: SECONDARY PROGRESSIVE MULTIPLE SCLEROSIS
     Dosage: 2 MG, BID (1X2)
     Route: 048
     Dates: start: 20210423
  5. LATA [Concomitant]
     Indication: MAJOR DEPRESSION
     Dosage: 10 MG, QD (1X1)
     Route: 065
     Dates: end: 20210720
  6. LATA [Concomitant]
     Dosage: 10 MG, QD (1X1)
     Route: 065
  7. MAYZENT [Suspect]
     Active Substance: SIPONIMOD
     Dosage: 2 MG, QD (1X1)
     Route: 048
     Dates: start: 20210527, end: 20210625
  8. STELARA [Suspect]
     Active Substance: USTEKINUMAB
     Dosage: 45 MG, QD (1X1)
     Route: 058
     Dates: start: 20200712
  9. BACLOFEN. [Concomitant]
     Active Substance: BACLOFEN
     Dosage: 5M+5MG+10MG
     Route: 065

REACTIONS (2)
  - Leukopenia [Unknown]
  - Lymphopenia [Not Recovered/Not Resolved]

NARRATIVE: CASE EVENT DATE: 20210625
